FAERS Safety Report 22595324 (Version 1)
Quarter: 2023Q2

REPORT INFORMATION
  Report Type: Spontaneous
  Country: JP (occurrence: JP)
  Receive Date: 20230613
  Receipt Date: 20230613
  Transmission Date: 20230721
  Serious: Yes (Other)
  Sender: FDA-Public Use
  Company Number: JP-PFIZER INC-202101199329

PATIENT
  Age: 60 Year
  Sex: Male

DRUGS (2)
  1. VORICONAZOLE [Suspect]
     Active Substance: VORICONAZOLE
     Indication: Infection prophylaxis
     Dosage: UNK
     Route: 048
  2. DASATINIB [Concomitant]
     Active Substance: DASATINIB
     Dosage: UNK

REACTIONS (3)
  - Squamous cell carcinoma [Unknown]
  - Actinic keratosis [Unknown]
  - Erythema [Recovered/Resolved]
